FAERS Safety Report 20815537 (Version 4)
Quarter: 2022Q3

REPORT INFORMATION
  Report Type: Spontaneous
  Country: US (occurrence: US)
  Receive Date: 20220511
  Receipt Date: 20220927
  Transmission Date: 20221027
  Serious: No
  Sender: FDA-Public Use
  Company Number: US-BRISTOL-MYERS SQUIBB COMPANY-2022-026727

PATIENT
  Age: 78 Year
  Sex: Male
  Weight: 61.23 kg

DRUGS (4)
  1. REVLIMID [Suspect]
     Active Substance: LENALIDOMIDE
     Indication: Plasma cell myeloma
     Dosage: D 1-14 Q 21 DAYS
     Route: 048
     Dates: start: 20210816
  2. REVLIMID [Suspect]
     Active Substance: LENALIDOMIDE
     Dosage: FREQUENCY : DAILY DAYS 1-21, EVERY 28 DAYS
     Route: 048
     Dates: start: 20220607
  3. REVLIMID [Suspect]
     Active Substance: LENALIDOMIDE
     Route: 048
     Dates: start: 20220523
  4. REVLIMID [Suspect]
     Active Substance: LENALIDOMIDE
     Dosage: FREQ : DAYS 1-21 Q 28 DAYS
     Route: 048
     Dates: start: 20220607

REACTIONS (4)
  - Blood potassium decreased [Recovering/Resolving]
  - Vomiting [Unknown]
  - Decreased appetite [Not Recovered/Not Resolved]
  - Nausea [Unknown]

NARRATIVE: CASE EVENT DATE: 20220315
